FAERS Safety Report 4747168-5 (Version None)
Quarter: 2005Q3

REPORT INFORMATION
  Report Type: 
  Country: None (occurrence: None)
  Receive Date: 20050815
  Receipt Date: 20050322
  Transmission Date: 20060218
  Serious: Yes (Hospitalization)
  Sender: FDA-Public Use
  Company Number: MEDI-0003073

PATIENT
  Age: 3 Month
  Sex: Female
  Weight: 4.4 kg

DRUGS (3)
  1. SYNAGIS [Suspect]
     Indication: ANTIVIRAL PROPHYLAXIS
     Dosage: 1 IN 30 D, INTRAMUSCULAR;  46 MG, 1 IN 30 D, INTRAMUSCULAR;  66 MG, 1 IN 30 D, INTRAMUSCULAR
     Route: 030
     Dates: start: 20050127, end: 20050127
  2. SYNAGIS [Suspect]
     Indication: ANTIVIRAL PROPHYLAXIS
     Dosage: 1 IN 30 D, INTRAMUSCULAR;  46 MG, 1 IN 30 D, INTRAMUSCULAR;  66 MG, 1 IN 30 D, INTRAMUSCULAR
     Route: 030
     Dates: start: 20050225
  3. SYNAGIS [Suspect]
     Indication: ANTIVIRAL PROPHYLAXIS
     Dosage: 1 IN 30 D, INTRAMUSCULAR;  46 MG, 1 IN 30 D, INTRAMUSCULAR;  66 MG, 1 IN 30 D, INTRAMUSCULAR
     Route: 030
     Dates: start: 20050325

REACTIONS (4)
  - BRONCHIOLITIS [None]
  - COUGH [None]
  - NASAL CONGESTION [None]
  - RESPIRATORY SYNCYTIAL VIRUS INFECTION [None]
